FAERS Safety Report 10673816 (Version 1)
Quarter: 2014Q4

REPORT INFORMATION
  Report Type: Spontaneous
  Country: US (occurrence: None)
  Receive Date: 20141223
  Receipt Date: 20141223
  Transmission Date: 20150529
  Serious: Yes (Life-Threatening, Hospitalization, Disabling, Other)
  Sender: FDA-Public Use
  Company Number: None

PATIENT
  Age: 35 Year
  Sex: Female

DRUGS (4)
  1. TRI-SPRINTEC [Suspect]
     Active Substance: ETHINYL ESTRADIOL\NORGESTIMATE
     Indication: MENSTRUAL CYCLE MANAGEMENT
     Dosage: PO , QD, 28 DAYS/MONTH.
     Dates: start: 20120816, end: 20121224
  2. ASPIRIN REGIMEN [Concomitant]
  3. BUSPIRONE [Concomitant]
     Active Substance: BUSPIRONE HYDROCHLORIDE
  4. TOPIRAMATE. [Concomitant]
     Active Substance: TOPIRAMATE

REACTIONS (9)
  - Fall [None]
  - Vomiting [None]
  - Cerebrovascular accident [None]
  - Loss of consciousness [None]
  - Balance disorder [None]
  - Tinnitus [None]
  - Hyperhidrosis [None]
  - Vision blurred [None]
  - Dysstasia [None]

NARRATIVE: CASE EVENT DATE: 20121224
